FAERS Safety Report 9849600 (Version 1)
Quarter: 2014Q1

REPORT INFORMATION
  Report Type: Spontaneous
  Country: US (occurrence: None)
  Receive Date: 20140127
  Receipt Date: 20140127
  Transmission Date: 20141002
  Serious: No
  Sender: FDA-Public Use
  Company Number: None

PATIENT
  Age: 39 Year
  Sex: Female
  Weight: 58.97 kg

DRUGS (1)
  1. MIRVASO [Suspect]
     Dosage: APPLY ONE A DAY ONCE DAILY APPLIED TO A SURFACE USUALLY THE SKIN

REACTIONS (5)
  - Flushing [None]
  - Burning sensation [None]
  - Rosacea [None]
  - Condition aggravated [None]
  - Skin disorder [None]
